FAERS Safety Report 21083011 (Version 3)
Quarter: 2022Q4

REPORT INFORMATION
  Report Type: Report from Study
  Country: US (occurrence: US)
  Receive Date: 20220714
  Receipt Date: 20221107
  Transmission Date: 20230113
  Serious: Yes (Hospitalization)
  Sender: FDA-Public Use
  Company Number: US-NOVARTISTESTPH-NVSC2022US159590

PATIENT
  Sex: Male

DRUGS (1)
  1. ENTRESTO [Suspect]
     Active Substance: SACUBITRIL\VALSARTAN
     Indication: Product used for unknown indication
     Dosage: UNK UNK, BID
     Route: 048

REACTIONS (7)
  - Hypotension [Recovered/Resolved]
  - Hypersomnia [Unknown]
  - Fatigue [Not Recovered/Not Resolved]
  - Atrioventricular block [Unknown]
  - Lethargy [Unknown]
  - Hypertension [Recovered/Resolved]
  - Asthenia [Recovered/Resolved]
